FAERS Safety Report 12941317 (Version 1)
Quarter: 2016Q4

REPORT INFORMATION
  Report Type: Spontaneous
  Country: US (occurrence: US)
  Receive Date: 20161115
  Receipt Date: 20161115
  Transmission Date: 20170207
  Serious: Yes (Hospitalization)
  Sender: FDA-Public Use
  Company Number: None

PATIENT
  Age: 71 Year
  Sex: Female
  Weight: 52.1 kg

DRUGS (11)
  1. SYNTHROID [Concomitant]
     Active Substance: LEVOTHYROXINE SODIUM
  2. CORTEF [Concomitant]
     Active Substance: HYDROCORTISONE
  3. ZESTRIL [Concomitant]
     Active Substance: LISINOPRIL
  4. ASA [Concomitant]
     Active Substance: ASPIRIN
  5. KLONOPIN [Concomitant]
     Active Substance: CLONAZEPAM
  6. IMODIUM [Concomitant]
     Active Substance: LOPERAMIDE HYDROCHLORIDE
  7. ZYVOX [Suspect]
     Active Substance: LINEZOLID
     Indication: STAPHYLOCOCCAL INFECTION
     Route: 048
  8. ECOTRIN [Concomitant]
     Active Substance: ASPIRIN
  9. VITD [Concomitant]
  10. FLORINEF ACETATE [Concomitant]
     Active Substance: FLUDROCORTISONE ACETATE
  11. PAXIL [Concomitant]
     Active Substance: PAROXETINE HYDROCHLORIDE

REACTIONS (1)
  - Hallucination [None]

NARRATIVE: CASE EVENT DATE: 20150924
